FAERS Safety Report 7816180-1 (Version None)
Quarter: 2011Q4

REPORT INFORMATION
  Report Type: 
  Country: None (occurrence: None)
  Receive Date: 20111015
  Receipt Date: 20111006
  Transmission Date: 20120403
  Serious: Yes (Death)
  Sender: FDA-Public Use
  Company Number: EC-ROCHE-795083

PATIENT
  Age: 60 Year
  Sex: Male

DRUGS (5)
  1. CYCLOPHOSPHAMIDE [Concomitant]
     Indication: NON-HODGKIN'S LYMPHOMA
     Dosage: FREQUENCY REPORTED AS ONCE EACH 3 WEEKS
     Route: 042
     Dates: start: 20110201, end: 20110701
  2. VINCRISTINE [Concomitant]
     Indication: NON-HODGKIN'S LYMPHOMA
     Dosage: FREQUENCY REPORTED AS ONCE EACH 3 WEEKS
     Route: 042
     Dates: start: 20110201, end: 20110701
  3. NEULASTIM [Suspect]
     Indication: NEUTROPENIA
     Dosage: FREQUENCY REPORTED AS ONCE EACH 3 WEEKS
     Route: 058
     Dates: start: 20110301, end: 20110701
  4. MABTHERA [Suspect]
     Indication: NON-HODGKIN'S LYMPHOMA
     Dosage: FREQUENCY REPORTED AS ONCE EACH 3 WEEKS
     Route: 042
     Dates: start: 20110201, end: 20110701
  5. DOXORUBICIN HCL [Concomitant]
     Indication: NON-HODGKIN'S LYMPHOMA
     Dosage: FREQUENCY REPORTED AS ONCE EACH 3 WEEKS
     Route: 042
     Dates: start: 20110201, end: 20110701

REACTIONS (1)
  - DEATH [None]
